FAERS Safety Report 22605751 (Version 1)
Quarter: 2023Q2

REPORT INFORMATION
  Report Type: Spontaneous
  Country: CN (occurrence: CN)
  Receive Date: 20230615
  Receipt Date: 20230615
  Transmission Date: 20230721
  Serious: Yes (Life-Threatening, Other)
  Sender: FDA-Public Use
  Company Number: None

PATIENT
  Age: 55 Year
  Sex: Female
  Weight: 55 kg

DRUGS (2)
  1. MANNITOL [Suspect]
     Active Substance: MANNITOL
     Indication: Reduction of increased intracranial pressure
     Dosage: 100 ML (MILLILITERS), 4 TIMES DAILY, DOSAGE FORM: INJECTION
     Route: 041
     Dates: start: 20230516, end: 20230525
  2. MANNITOL [Suspect]
     Active Substance: MANNITOL
     Indication: Septic shock

REACTIONS (5)
  - Septic shock [Unknown]
  - Condition aggravated [Unknown]
  - Hyperchloraemia [Recovering/Resolving]
  - Hypokalaemia [Recovering/Resolving]
  - Hypernatraemia [Recovering/Resolving]

NARRATIVE: CASE EVENT DATE: 20230525
